FAERS Safety Report 10152278 (Version 1)
Quarter: 2014Q2

REPORT INFORMATION
  Report Type: Spontaneous
  Country: IN (occurrence: IN)
  Receive Date: 20140505
  Receipt Date: 20140505
  Transmission Date: 20141212
  Serious: Yes (Other)
  Sender: FDA-Public Use
  Company Number: IN-009507513-1405IND001923

PATIENT
  Age: 53 Year
  Sex: Male
  Weight: 63.5 kg

DRUGS (1)
  1. JANUVIA [Suspect]
     Indication: DIABETES MELLITUS
     Dosage: 1 DOSE DAILY
     Route: 048

REACTIONS (2)
  - Typhoid fever [Recovering/Resolving]
  - Nephrolithiasis [Recovering/Resolving]
